FAERS Safety Report 7987917-6 (Version None)
Quarter: 2011Q4

REPORT INFORMATION
  Report Type: 
  Country: None (occurrence: None)
  Receive Date: 20111216
  Receipt Date: 20101116
  Transmission Date: 20120403
  Serious: No
  Sender: FDA-Public Use
  Company Number: US-BRISTOL-MYERS SQUIBB COMPANY-15389992

PATIENT
  Sex: Female

DRUGS (3)
  1. ABILIFY [Suspect]
  2. LEXAPRO [Concomitant]
  3. COGENTIN [Suspect]

REACTIONS (2)
  - DISORIENTATION [None]
  - AKATHISIA [None]
